FAERS Safety Report 9814686 (Version 2)
Quarter: 2014Q1

REPORT INFORMATION
  Report Type: Spontaneous
  Country: US (occurrence: US)
  Receive Date: 20140113
  Receipt Date: 20140113
  Transmission Date: 20141002
  Serious: Yes (Hospitalization)
  Sender: FDA-Public Use
  Company Number: US-SANOFI-AVENTIS-2012SA087686

PATIENT
  Age: 67 Year
  Sex: Female
  Weight: 89 kg

DRUGS (15)
  1. DOCETAXEL [Suspect]
     Indication: BREAST CANCER
     Dosage: FORM: VIAL?DOSE: 75 MG/M2
     Route: 042
     Dates: start: 20090209
  2. CARBOPLATIN [Suspect]
     Indication: BREAST CANCER
     Dosage: FORM: VIAL?DOSE: 6 AUC
     Route: 042
     Dates: start: 20090209
  3. BEVACIZUMAB [Concomitant]
     Indication: BREAST CANCER
     Dosage: FORM; VIAL?DOSE: 15 MG/KG
     Route: 042
     Dates: start: 20090209
  4. TRASTUZUMAB [Concomitant]
     Indication: BREAST CANCER
     Dosage: ?LOADING DOSE
     Route: 042
     Dates: start: 20090209, end: 20090209
  5. TRASTUZUMAB [Concomitant]
     Indication: BREAST CANCER
     Dosage: ?MAINTENANCE DOSE?DOSE: 6 MG/KG
     Route: 042
     Dates: start: 20090209
  6. PRILOSEC [Concomitant]
     Dosage: FREQUENCY: 2D
     Dates: start: 20081218
  7. LISINOPRIL [Concomitant]
     Dosage: FREQUENCY: 2 D
     Dates: start: 20081218
  8. ALBUTEROL [Concomitant]
     Dosage: FREQUENCY: TDD: 2 PUFFS (1 AS REQUIRED)
     Route: 055
     Dates: start: 20081218
  9. XANAX [Concomitant]
     Dosage: DOSE: 1-2 MG
     Dates: start: 20081218
  10. EFFEXOR [Concomitant]
     Dates: start: 20081218
  11. COMPAZINE [Concomitant]
     Indication: NAUSEA
     Dates: start: 20090527
  12. LOMOTIL [Concomitant]
     Indication: DIARRHOEA
     Dates: start: 20090527
  13. K-DUR [Concomitant]
     Dates: start: 20090622
  14. ZOFRAN [Concomitant]
     Dates: start: 20090527
  15. PERCOCET [Concomitant]
     Dosage: TDD: 1-2 MG
     Dates: start: 20081218

REACTIONS (1)
  - Presyncope [Recovered/Resolved]
